FAERS Safety Report 8888152 (Version 3)
Quarter: 2013Q3

REPORT INFORMATION
  Report Type: Report from Study
  Country: JP (occurrence: JP)
  Receive Date: 20121106
  Receipt Date: 20130718
  Transmission Date: 20140515
  Serious: Yes (Hospitalization)
  Sender: FDA-Public Use
  Company Number: JP-009507513-1210JPN014715

PATIENT
  Age: 59 Year
  Sex: Male
  Weight: 74 kg

DRUGS (11)
  1. PEGINTRON [Suspect]
     Indication: CHRONIC HEPATITIS C
     Dosage: 1.5 MICROGRAM PER KILOGRAM, QW
     Route: 058
     Dates: start: 20120822
  2. REBETOL [Suspect]
     Indication: CHRONIC HEPATITIS C
     Dosage: 800 MG, QD
     Route: 048
     Dates: start: 20120822
  3. TELAVIC [Suspect]
     Indication: CHRONIC HEPATITIS C
     Dosage: 1500 MG, QD
     Route: 048
     Dates: start: 20120822, end: 20120825
  4. TELAVIC [Suspect]
     Dosage: 1500 MG, QD
     Route: 048
     Dates: start: 20120828, end: 20120912
  5. ALLOZYM [Concomitant]
     Indication: BLOOD URIC ACID INCREASED
     Dosage: 200 MG, QD
     Route: 048
  6. OMEPRAL [Concomitant]
     Indication: GASTROOESOPHAGEAL REFLUX DISEASE
     Dosage: 20 MG, QD
     Route: 048
  7. ALESION [Concomitant]
     Indication: PROPHYLAXIS
     Dosage: 20 MG, QD
     Route: 048
     Dates: start: 20120822, end: 20120824
  8. ALLEGRA [Concomitant]
     Indication: RASH
     Dosage: 120 MG, QD
     Route: 048
     Dates: start: 20120824
  9. ALLEGRA [Concomitant]
     Indication: CHRONIC HEPATITIS C
  10. PREDONINE [Concomitant]
     Indication: RASH
     Dosage: 30 MG, QD
     Route: 048
     Dates: start: 20120824, end: 20120912
  11. ANTEBATE [Concomitant]
     Indication: RASH
     Dosage: FORMULATION: EXT, DAILY DOSE UNKNOWN, PRN
     Route: 051
     Dates: start: 20120824

REACTIONS (1)
  - Rash [Not Recovered/Not Resolved]
